FAERS Safety Report 7901155-4 (Version None)
Quarter: 2011Q4

REPORT INFORMATION
  Report Type: 
  Country: None (occurrence: None)
  Receive Date: 20111108
  Receipt Date: 20111104
  Transmission Date: 20120403
  Serious: Yes (Other)
  Sender: FDA-Public Use
  Company Number: NL-PFIZER INC-2011234995

PATIENT
  Age: 74 Year
  Sex: Female

DRUGS (3)
  1. CALCIUM CARBONATE [Concomitant]
  2. VARENICLINE TARTRATE [Suspect]
     Dosage: UNK
  3. DIAZEPAM [Concomitant]
     Dosage: UNK

REACTIONS (5)
  - SUFFOCATION FEELING [None]
  - FEAR [None]
  - PANIC ATTACK [None]
  - HYPERVENTILATION [None]
  - SCREAMING [None]
